FAERS Safety Report 18555241 (Version 1)
Quarter: 2020Q4

REPORT INFORMATION
  Report Type: Spontaneous
  Country: US (occurrence: US)
  Receive Date: 20201127
  Receipt Date: 20201127
  Transmission Date: 20210114
  Serious: Yes (Other)
  Sender: FDA-Public Use
  Company Number: US-PFIZER INC-2020466197

PATIENT
  Age: 79 Year
  Sex: Female

DRUGS (1)
  1. LORBRENA [Suspect]
     Active Substance: LORLATINIB
     Dosage: 100 MG

REACTIONS (8)
  - Intracranial aneurysm [Unknown]
  - Hypotension [Unknown]
  - Chronic obstructive pulmonary disease [Unknown]
  - Pulmonary hypertension [Unknown]
  - Neoplasm progression [Unknown]
  - Phlebitis [Unknown]
  - Asthenia [Unknown]
  - Trigeminal neuralgia [Unknown]
